FAERS Safety Report 20231027 (Version 1)
Quarter: 2021Q4

REPORT INFORMATION
  Report Type: Spontaneous
  Country: US (occurrence: US)
  Receive Date: 20211227
  Receipt Date: 20211227
  Transmission Date: 20220303
  Serious: No
  Sender: FDA-Public Use
  Company Number: US-drreddys-SPO/USA/21/0145126

PATIENT
  Age: 43 Year
  Sex: Male

DRUGS (1)
  1. ZENATANE [Suspect]
     Active Substance: ISOTRETINOIN
     Indication: Product used for unknown indication
     Dosage: RMA ISSUE DATE:07 JANUARY 2021 03:19:27 PM,10 FEBRUARY 2021 03:19:03 PM,11 MARCH 2021 02:34:35 PM,18

REACTIONS (1)
  - Hypertension [Unknown]
